FAERS Safety Report 22050300 (Version 1)
Quarter: 2023Q1

REPORT INFORMATION
  Report Type: Spontaneous
  Country: JP (occurrence: None)
  Receive Date: 20230301
  Receipt Date: 20230301
  Transmission Date: 20230418
  Serious: Yes (Other)
  Sender: FDA-Public Use
  Company Number: 2021A805275

PATIENT
  Age: 53 Year
  Sex: Female

DRUGS (2)
  1. LYNPARZA [Suspect]
     Active Substance: OLAPARIB
     Indication: Ovarian cancer
     Dosage: NUMBER OF SEPARATE DOSAGES UNKNOWN
     Route: 048
  2. BEVACIZUMAB [Concomitant]
     Active Substance: BEVACIZUMAB
     Indication: Ovarian cancer
     Dosage: DOSE UNKNOWN
     Route: 065

REACTIONS (4)
  - Ovarian cancer recurrent [Unknown]
  - Neutrophil count decreased [Unknown]
  - Anaemia [Unknown]
  - Hypertension [Unknown]
